FAERS Safety Report 6255372-2 (Version None)
Quarter: 2009Q3

REPORT INFORMATION
  Report Type: 
  Country: None (occurrence: None)
  Receive Date: 20090702
  Receipt Date: 20090623
  Transmission Date: 20100115
  Serious: Yes (Life-Threatening, Hospitalization)
  Sender: FDA-Public Use
  Company Number: JP-AMGEN-US351006

PATIENT
  Sex: Female
  Weight: 42 kg

DRUGS (10)
  1. ENBREL [Suspect]
     Indication: RHEUMATOID ARTHRITIS
     Route: 058
     Dates: start: 20090417, end: 20090526
  2. PREDNISOLONE [Concomitant]
     Indication: RHEUMATOID ARTHRITIS
     Route: 048
  3. MOBIC [Concomitant]
     Indication: RHEUMATOID ARTHRITIS
     Route: 048
     Dates: start: 20070301
  4. GLUFAST [Concomitant]
     Indication: DIABETES MELLITUS
     Route: 048
  5. LIPITOR [Concomitant]
     Indication: HYPERLIPIDAEMIA
     Route: 048
  6. MAGNESIUM OXIDE [Concomitant]
     Indication: CONSTIPATION
     Route: 048
  7. OLMETEC [Concomitant]
     Indication: HYPERTENSION
     Route: 048
  8. ADALAT CC [Concomitant]
     Indication: HYPERTENSION
     Route: 048
  9. AZULFIDINE EN-TABS [Concomitant]
     Route: 048
     Dates: start: 20070301
  10. NORVASC [Concomitant]
     Indication: HYPERTENSION
     Route: 048

REACTIONS (2)
  - LYMPHOCYTE COUNT DECREASED [None]
  - PNEUMOCYSTIS JIROVECI PNEUMONIA [None]
